FAERS Safety Report 7381333-6 (Version None)
Quarter: 2011Q1

REPORT INFORMATION
  Report Type: 
  Country: None (occurrence: None)
  Receive Date: 20110321
  Receipt Date: 20110311
  Transmission Date: 20110831
  Serious: Yes (Other)
  Sender: FDA-Public Use
  Company Number: 2011SP011536

PATIENT
  Age: 22 Year
  Sex: Female

DRUGS (4)
  1. MIRTAZAPINE [Suspect]
     Indication: DEPRESSION
     Dosage: QD, PO
     Route: 048
     Dates: start: 20110114, end: 20110125
  2. RIZE [Concomitant]
  3. PAXIL [Concomitant]
  4. MYSLEE [Concomitant]

REACTIONS (12)
  - CONFUSIONAL STATE [None]
  - HYPERVENTILATION [None]
  - SELECTIVE MUTISM [None]
  - AMNESIA [None]
  - TERMINAL INSOMNIA [None]
  - AGITATION [None]
  - DEPRESSED MOOD [None]
  - FEELING ABNORMAL [None]
  - CRYING [None]
  - DISSOCIATION [None]
  - ANXIETY [None]
  - ACTIVATION SYNDROME [None]
